FAERS Safety Report 9168960 (Version 1)
Quarter: 2013Q1

REPORT INFORMATION
  Report Type: Report from Study
  Country: DE (occurrence: DE)
  Receive Date: 20130318
  Receipt Date: 20130318
  Transmission Date: 20140127
  Serious: Yes (Hospitalization)
  Sender: FDA-Public Use
  Company Number: DE-ROCHE-1202672

PATIENT
  Sex: Female
  Weight: 76 kg

DRUGS (2)
  1. RITUXIMAB [Suspect]
     Indication: LYMPHOMA
     Route: 065
     Dates: start: 20091207, end: 20100609
  2. RITUXIMAB [Suspect]
     Route: 065

REACTIONS (1)
  - Pulmonary embolism [Recovered/Resolved]
